FAERS Safety Report 6386955-7 (Version None)
Quarter: 2009Q4

REPORT INFORMATION
  Report Type: 
  Country: None (occurrence: None)
  Receive Date: 20091002
  Receipt Date: 20090923
  Transmission Date: 20100525
  Serious: Yes (Hospitalization)
  Sender: FDA-Public Use
  Company Number: NZ-ELI_LILLY_AND_COMPANY-NZ200909005428

PATIENT
  Age: 45 Year
  Sex: Female

DRUGS (4)
  1. ZYPREXA [Suspect]
     Dosage: 20 MG, UNK
     Dates: end: 20090801
  2. ZYPREXA [Suspect]
     Dates: start: 20090801
  3. LITHIUM [Concomitant]
     Dosage: 1000 MG, UNK
  4. VALPROATE SODIUM [Concomitant]
     Dosage: 1400 MG, UNK

REACTIONS (2)
  - DISEASE RECURRENCE [None]
  - RABBIT SYNDROME [None]
